FAERS Safety Report 5220367-4 (Version None)
Quarter: 2006Q4

REPORT INFORMATION
  Report Type: 
  Country: None (occurrence: None)
  Receive Date: 20061201
  Receipt Date: 20060714
  Transmission Date: 20070319
  Serious: No
  Sender: FDA-Public Use
  Company Number: 2006PV017644

PATIENT
  Age: 58 Year
  Sex: Male
  Weight: 103.4201 kg

DRUGS (4)
  1. BYETTA [Suspect]
     Indication: DIABETES MELLITUS NON-INSULIN-DEPENDENT
     Dosage: 10 MCG;BID;SC
     Route: 058
     Dates: start: 20060713
  2. METFORMIN HCL [Concomitant]
  3. ACTOS /USA/ [Concomitant]
  4. GLIPIZIDE [Concomitant]

REACTIONS (3)
  - ANOREXIA [None]
  - FOOD CRAVING [None]
  - NAUSEA [None]
